FAERS Safety Report 10768728 (Version 4)
Quarter: 2015Q2

REPORT INFORMATION
  Report Type: Spontaneous
  Country: US (occurrence: US)
  Receive Date: 20150206
  Receipt Date: 20150515
  Transmission Date: 20150821
  Serious: Yes (Hospitalization, Other)
  Sender: FDA-Public Use
  Company Number: US-JNJFOC-20150201032

PATIENT
  Age: 45 Year
  Sex: Female
  Weight: 60.78 kg

DRUGS (2)
  1. TYLENOL EXTRA STRENGTH [Suspect]
     Active Substance: ACETAMINOPHEN
     Indication: PAIN IN EXTREMITY
     Dosage: 2-3 PILLS (6000-9000 MG DAILY)
     Route: 048
     Dates: start: 20080319, end: 20080321
  2. TYLENOL EXTRA STRENGTH [Suspect]
     Active Substance: ACETAMINOPHEN
     Indication: TENDON RUPTURE
     Dosage: 2-3 PILLS (6000-9000 MG DAILY)
     Route: 048
     Dates: start: 20080319, end: 20080321

REACTIONS (4)
  - Acute kidney injury [Unknown]
  - Accidental overdose [Unknown]
  - Acute hepatic failure [Unknown]
  - Alcohol abuse [Unknown]

NARRATIVE: CASE EVENT DATE: 200803
